FAERS Safety Report 25492644 (Version 1)
Quarter: 2025Q2

REPORT INFORMATION
  Report Type: Spontaneous
  Country: US (occurrence: US)
  Receive Date: 20250630
  Receipt Date: 20250630
  Transmission Date: 20250717
  Serious: Yes (Other)
  Sender: COOPERSURGICAL
  Company Number: US-COOPERSURGICAL, INC.-2024CPS003557

PATIENT
  Sex: Female
  Weight: 80.726 kg

DRUGS (1)
  1. PARAGARD T 380A [Suspect]
     Active Substance: COPPER
     Route: 015
     Dates: start: 20140201

REACTIONS (21)
  - Caesarean section [Unknown]
  - Device breakage [Recovered/Resolved]
  - Foreign body in reproductive tract [Recovered/Resolved]
  - Complication of device removal [Recovered/Resolved]
  - Embedded device [Recovered/Resolved]
  - Device issue [Recovered/Resolved]
  - Device material issue [Recovered/Resolved]
  - Procedural pain [Recovered/Resolved]
  - Alopecia [Unknown]
  - Affective disorder [Unknown]
  - Uterine prolapse [Not Recovered/Not Resolved]
  - Genital hypoaesthesia [Not Recovered/Not Resolved]
  - Nervous system disorder [Not Recovered/Not Resolved]
  - Cystocele [Not Recovered/Not Resolved]
  - Uterine scar [Not Recovered/Not Resolved]
  - Emotional disorder [Unknown]
  - Muscle spasms [Unknown]
  - Polymenorrhoea [Unknown]
  - Dyspareunia [Not Recovered/Not Resolved]
  - Pain [Not Recovered/Not Resolved]
  - Intermenstrual bleeding [Unknown]

NARRATIVE: CASE EVENT DATE: 20200101
